FAERS Safety Report 12912787 (Version 2)
Quarter: 2016Q4

REPORT INFORMATION
  Report Type: Spontaneous
  Country: GR (occurrence: GR)
  Receive Date: 20161104
  Receipt Date: 20161109
  Transmission Date: 20170207
  Serious: Yes (Death)
  Sender: FDA-Public Use
  Company Number: GR-SA-2016SA201257

PATIENT
  Age: 73 Year
  Sex: Female

DRUGS (8)
  1. PRIMAGAL [Concomitant]
  2. VOXIN [Concomitant]
  3. VFEND [Concomitant]
     Active Substance: VORICONAZOLE
  4. FILICINE [Concomitant]
  5. AMLODIPINE [Concomitant]
     Active Substance: AMLODIPINE BESYLATE
  6. LORDIN [Concomitant]
     Active Substance: OMEPRAZOLE
     Route: 042
  7. THYMOGLOBULINE [Suspect]
     Active Substance: LAPINE T-LYMPHOCYTE IMMUNE GLOBULIN
     Route: 065
     Dates: start: 20160926, end: 20160927
  8. SOLURIC [Concomitant]
     Active Substance: ALLOPURINOL

REACTIONS (1)
  - Death [Fatal]

NARRATIVE: CASE EVENT DATE: 20160928
